FAERS Safety Report 9397411 (Version 1)
Quarter: 2013Q3

REPORT INFORMATION
  Report Type: Spontaneous
  Country: US (occurrence: US)
  Receive Date: 20130712
  Receipt Date: 20130712
  Transmission Date: 20140515
  Serious: Yes (Death)
  Sender: FDA-Public Use
  Company Number: US-COVIDIEN/TYCO HEALTHCARE/MALLINCKRODT-T201300325

PATIENT
  Age: 35 Year
  Sex: Male
  Weight: 74.83 kg

DRUGS (3)
  1. OXYCODONE/ACETAMINOPHEN [Suspect]
     Indication: BREAKTHROUGH PAIN
     Dosage: 2 TABS PER DAY AS NEEDED
     Dates: start: 20121221, end: 20130120
  2. GABAPENTIN [Concomitant]
     Dosage: 800 MG, TID
  3. PRILOSEC                           /00661201/ [Concomitant]
     Dosage: UNK

REACTIONS (3)
  - Chromaturia [None]
  - Abdominal pain upper [Unknown]
  - Drug effect decreased [Recovered/Resolved]
